FAERS Safety Report 5871953-X (Version None)
Quarter: 2008Q3

REPORT INFORMATION
  Report Type: 
  Country: None (occurrence: None)
  Receive Date: 20080905
  Receipt Date: 20080827
  Transmission Date: 20090109
  Serious: Yes (Other)
  Sender: FDA-Public Use
  Company Number: GB-JNJFOC-20080900136

PATIENT
  Age: 29 Year
  Sex: Male

DRUGS (2)
  1. ITRACONAZOLE [Suspect]
     Indication: PROPHYLAXIS
     Route: 065
  2. TRIMETHOPRIM + SULFAMETHOXAZOLE [Suspect]
     Indication: PROPHYLAXIS
     Route: 065

REACTIONS (5)
  - EARLY SATIETY [None]
  - GASTRODUODENITIS [None]
  - GRANULOMA [None]
  - VOMITING [None]
  - WEIGHT DECREASED [None]
